FAERS Safety Report 16906145 (Version 1)
Quarter: 2019Q4

REPORT INFORMATION
  Report Type: Spontaneous
  Country: BR (occurrence: BR)
  Receive Date: 20191011
  Receipt Date: 20191011
  Transmission Date: 20200122
  Serious: Yes (Other)
  Sender: FDA-Public Use
  Company Number: BR-JNJFOC-20191008886

PATIENT
  Age: 78 Year
  Sex: Male

DRUGS (10)
  1. LOSARTAN. [Concomitant]
     Active Substance: LOSARTAN
     Indication: CARDIAC FIBRILLATION
     Dosage: 2 DF, QD
     Route: 048
  2. TANSULOSINA [Concomitant]
     Indication: URETHRAL DISORDER
     Dosage: 1 DF, QD
     Route: 048
  3. FUROSEMIDE. [Concomitant]
     Active Substance: FUROSEMIDE
     Indication: HEART RATE IRREGULAR
  4. RIVAROXABAN [Suspect]
     Active Substance: RIVAROXABAN
     Indication: PRODUCT USED FOR UNKNOWN INDICATION
     Dosage: 15 MG, QD
     Route: 048
     Dates: start: 2017, end: 20190925
  5. RIVAROXABAN [Suspect]
     Active Substance: RIVAROXABAN
     Dosage: 15 MG, QD
     Route: 048
     Dates: start: 20190930
  6. FUROSEMIDE. [Concomitant]
     Active Substance: FUROSEMIDE
     Indication: SWELLING
     Dosage: 1 DF, QD
     Route: 048
  7. TANSULOSINA [Concomitant]
     Indication: BLADDER DISORDER
  8. GLIFAGE [Concomitant]
     Active Substance: METFORMIN HYDROCHLORIDE
     Indication: DIABETES MELLITUS
     Dosage: 2 DF, QD
     Route: 048
  9. ALOPURINOL [Concomitant]
     Active Substance: ALLOPURINOL
     Indication: BLOOD URIC ACID ABNORMAL
     Dosage: 100 MG, QD
     Route: 048
  10. SELOZOK [Concomitant]
     Active Substance: METOPROLOL SUCCINATE
     Dosage: 2 DF, QD
     Route: 048

REACTIONS (5)
  - Haemorrhage urinary tract [Recovered/Resolved]
  - Urinary retention [Unknown]
  - Haemorrhage urinary tract [Recovering/Resolving]
  - Peripheral swelling [Recovered/Resolved]
  - Intentional product use issue [Unknown]

NARRATIVE: CASE EVENT DATE: 201809
